FAERS Safety Report 16864499 (Version 1)
Quarter: 2019Q3

REPORT INFORMATION
  Report Type: Spontaneous
  Country: US (occurrence: US)
  Receive Date: 20190928
  Receipt Date: 20190928
  Transmission Date: 20191005
  Serious: Yes (Hospitalization, Other)
  Sender: FDA-Public Use
  Company Number: US-ACCORD-156024

PATIENT
  Age: 16 Year
  Sex: Male

DRUGS (1)
  1. ESCITALOPRAM [Suspect]
     Active Substance: ESCITALOPRAM OXALATE
     Indication: MAJOR DEPRESSION
     Dosage: 10 MG PER DAY, 10 DAYS EARLIER

REACTIONS (6)
  - Depression [Recovering/Resolving]
  - Hypothyroidism [Unknown]
  - Constipation [Unknown]
  - Temperature intolerance [Unknown]
  - Suicidal ideation [Recovered/Resolved]
  - Alopecia [Unknown]
